APPROVED DRUG PRODUCT: CLEOCIN T
Active Ingredient: CLINDAMYCIN PHOSPHATE
Strength: EQ 1% BASE
Dosage Form/Route: GEL;TOPICAL
Application: N050615 | Product #001 | TE Code: AB1
Applicant: PFIZER INC
Approved: Jan 7, 1987 | RLD: Yes | RS: Yes | Type: RX